FAERS Safety Report 8021235-5 (Version None)
Quarter: 2012Q1

REPORT INFORMATION
  Report Type: 
  Country: None (occurrence: None)
  Receive Date: 20120104
  Receipt Date: 20111230
  Transmission Date: 20120608
  Serious: Yes (Hospitalization, Other)
  Sender: FDA-Public Use
  Company Number: ES-JNJFOC-20111211970

PATIENT
  Sex: Female
  Weight: 55 kg

DRUGS (3)
  1. RISPERDAL CONSTA [Suspect]
     Indication: SCHIZOPHRENIA
     Route: 030
     Dates: start: 20111207
  2. MERITENE [Concomitant]
     Indication: PRODUCT USED FOR UNKNOWN INDICATION
     Route: 065
  3. RISPERDAL CONSTA [Suspect]
     Route: 030
     Dates: start: 20100101, end: 20110101

REACTIONS (7)
  - PROCTALGIA [None]
  - SPEECH DISORDER [None]
  - RECTAL HAEMORRHAGE [None]
  - BLOOD PRESSURE FLUCTUATION [None]
  - ABDOMINAL PAIN UPPER [None]
  - UNRESPONSIVE TO STIMULI [None]
  - WEIGHT DECREASED [None]
